FAERS Safety Report 24233001 (Version 1)
Quarter: 2024Q3

REPORT INFORMATION
  Report Type: Report from Study
  Country: CA (occurrence: CA)
  Receive Date: 20240821
  Receipt Date: 20240821
  Transmission Date: 20241017
  Serious: Yes (Other)
  Sender: LEO PHARM
  Company Number: CA-LEO Pharma-372801

PATIENT
  Age: 55 Year

DRUGS (3)
  1. ADBRY [Suspect]
     Active Substance: TRALOKINUMAB-LDRM
     Indication: Product used for unknown indication
     Dosage: MAINTENANCE DOSE: 300 MG?FORMAT: 150 MG/ML PRE-FILLED SYRINGE.
     Route: 058
  2. ADBRY [Suspect]
     Active Substance: TRALOKINUMAB-LDRM
     Indication: Product used for unknown indication
     Dosage: LOADING DOSE: 600 MG ?FORMAT: 150 MG/ML PRE-FILLED SYRINGE.
     Route: 058
     Dates: start: 20231121
  3. BETADERM [Concomitant]
     Active Substance: BETAMETHASONE VALERATE
     Indication: Product used for unknown indication
     Dosage: DOSE, FREQUENCY: ASKED BUT UNKNOWN; STOP DATE: ONGOING

REACTIONS (1)
  - Skin infection [Not Recovered/Not Resolved]

NARRATIVE: CASE EVENT DATE: 20240815
